FAERS Safety Report 7376821-2 (Version None)
Quarter: 2011Q1

REPORT INFORMATION
  Report Type: 
  Country: None (occurrence: None)
  Receive Date: 20110325
  Receipt Date: 20110317
  Transmission Date: 20110831
  Serious: Yes (Hospitalization)
  Sender: FDA-Public Use
  Company Number: JP-MERCK-1103USA02887

PATIENT
  Age: 79 Year
  Sex: Male

DRUGS (10)
  1. ACECOL [Concomitant]
     Indication: HYPERTENSION
     Route: 048
     Dates: start: 20101117, end: 20110310
  2. ASPENON [Suspect]
     Indication: ARRHYTHMIA
     Route: 048
     Dates: start: 20101117, end: 20110310
  3. JANUVIA [Suspect]
     Indication: DIABETES MELLITUS
     Route: 048
     Dates: start: 20110115, end: 20110310
  4. WARFARIN POTASSIUM [Concomitant]
     Route: 048
  5. PURSENNID [Concomitant]
     Route: 048
     Dates: end: 20110310
  6. PARIET [Concomitant]
     Indication: ABDOMINAL DISCOMFORT
     Route: 048
     Dates: start: 20101106, end: 20110310
  7. ARTIST [Concomitant]
     Indication: HYPERTENSION
     Route: 048
     Dates: end: 20110310
  8. ITOROL [Concomitant]
     Route: 048
  9. LASIX [Concomitant]
     Route: 065
  10. MAGMITT [Concomitant]
     Route: 048
     Dates: end: 20110310

REACTIONS (1)
  - INTERSTITIAL LUNG DISEASE [None]
